FAERS Safety Report 14930873 (Version 1)
Quarter: 2018Q2

REPORT INFORMATION
  Report Type: Spontaneous
  Country: US (occurrence: US)
  Receive Date: 20180524
  Receipt Date: 20180524
  Transmission Date: 20180711
  Serious: No
  Sender: FDA-Public Use
  Company Number: US-BAUSCH-BL-2017-024485

PATIENT
  Age: 77 Year
  Sex: Female
  Weight: 72.64 kg

DRUGS (4)
  1. PROLENSA [Suspect]
     Active Substance: BROMFENAC SODIUM
     Dosage: ONE DROP IN HER LEFT EYE, MIGHT HAVE INSTILLED THE PRODUCT TWO SEPARATE EVENTS IN HER LEFT EYE
     Route: 047
     Dates: start: 20170731
  2. BESIVANCE [Concomitant]
     Active Substance: BESIFLOXACIN
     Indication: CATARACT OPERATION
     Dosage: RIGHT EYE
     Route: 047
     Dates: start: 20170719, end: 20170726
  3. PROLENSA [Suspect]
     Active Substance: BROMFENAC SODIUM
     Indication: CATARACT OPERATION
     Dosage: IN RIGHT EYE
     Route: 047
     Dates: start: 201707
  4. PREDNISOLONE. [Concomitant]
     Active Substance: PREDNISOLONE
     Indication: CATARACT OPERATION
     Route: 047
     Dates: start: 20170724

REACTIONS (3)
  - Swelling face [Not Recovered/Not Resolved]
  - Accidental exposure to product [Unknown]
  - Eye swelling [Not Recovered/Not Resolved]

NARRATIVE: CASE EVENT DATE: 20170731
